FAERS Safety Report 23382814 (Version 1)
Quarter: 2024Q1

REPORT INFORMATION
  Report Type: Spontaneous
  Country: US (occurrence: US)
  Receive Date: 20240109
  Receipt Date: 20240109
  Transmission Date: 20240410
  Serious: Yes (Other)
  Sender: FDA-Public Use
  Company Number: US-SCIEGENP-2023SCLIT00861

PATIENT
  Age: 34 Year
  Sex: Male

DRUGS (2)
  1. QUETIAPINE [Suspect]
     Active Substance: QUETIAPINE
     Indication: Bipolar disorder
     Route: 065
  2. QUETIAPINE [Suspect]
     Active Substance: QUETIAPINE
     Indication: Schizophrenia

REACTIONS (4)
  - Pancreatitis acute [Unknown]
  - Diabetes mellitus [Unknown]
  - Diabetic ketoacidosis [Unknown]
  - Hypertriglyceridaemia [Unknown]
